FAERS Safety Report 7673704-5 (Version None)
Quarter: 2011Q3

REPORT INFORMATION
  Report Type: 
  Country: None (occurrence: None)
  Receive Date: 20110810
  Receipt Date: 20110728
  Transmission Date: 20111222
  Serious: Yes (Hospitalization)
  Sender: FDA-Public Use
  Company Number: IL-AMGEN-ISRSP2011040160

PATIENT
  Age: 59 Year
  Sex: Male

DRUGS (6)
  1. CARMUSTINE [Concomitant]
     Indication: MULTIPLE MYELOMA
  2. NEUPOGEN [Concomitant]
     Indication: NEUTROPENIA
  3. NEULASTIM [Suspect]
     Indication: NEUTROPENIA
     Dosage: 6 MG, UNK
     Dates: start: 20110723
  4. VINCRISTINE [Concomitant]
     Indication: MULTIPLE MYELOMA
  5. DOXORUBICIN HCL [Concomitant]
     Indication: MULTIPLE MYELOMA
  6. PREDNISONE [Concomitant]
     Indication: MULTIPLE MYELOMA

REACTIONS (4)
  - DIVERTICULAR PERFORATION [None]
  - NEUTROPENIA [None]
  - PYREXIA [None]
  - SEPSIS [None]
